FAERS Safety Report 10515771 (Version 2)
Quarter: 2014Q4

REPORT INFORMATION
  Report Type: Spontaneous
  Country: JP (occurrence: None)
  Receive Date: 20141009
  Receipt Date: 20141009
  Transmission Date: 20150528
  Serious: No
  Sender: FDA-Public Use
  Company Number: B1023075A

PATIENT
  Age: 37 Year
  Sex: Female

DRUGS (1)
  1. PAROXETINE HYDROCHLORIDE. [Suspect]
     Active Substance: PAROXETINE HYDROCHLORIDE
     Indication: DEPRESSION
     Route: 048
     Dates: start: 20140512, end: 20140512

REACTIONS (3)
  - Asthenia [None]
  - Immobile [None]
  - Anxiety [None]

NARRATIVE: CASE EVENT DATE: 20140512
